FAERS Safety Report 20313033 (Version 1)
Quarter: 2022Q1

REPORT INFORMATION
  Report Type: Spontaneous
  Country: US (occurrence: US)
  Receive Date: 20220109
  Receipt Date: 20220109
  Transmission Date: 20220424
  Serious: No
  Sender: FDA-Public Use
  Company Number: US-ORGANON-O2201USA000061

PATIENT
  Age: 17 Year
  Sex: Female
  Weight: 58.957 kg

DRUGS (1)
  1. NEXPLANON [Suspect]
     Active Substance: ETONOGESTREL
     Indication: Contraception
     Dosage: 1 (IMPLANT) IN UPPER LEFT ARM
     Route: 058
     Dates: start: 20180101

REACTIONS (7)
  - Ovarian cyst [Not Recovered/Not Resolved]
  - Device kink [Not Recovered/Not Resolved]
  - Implant site pain [Not Recovered/Not Resolved]
  - Menometrorrhagia [Not Recovered/Not Resolved]
  - Hypoaesthesia [Not Recovered/Not Resolved]
  - Muscular weakness [Not Recovered/Not Resolved]
  - Incorrect product administration duration [Unknown]

NARRATIVE: CASE EVENT DATE: 20210101
